FAERS Safety Report 22590754 (Version 4)
Quarter: 2024Q2

REPORT INFORMATION
  Report Type: Report from Study
  Country: US (occurrence: US)
  Receive Date: 20230612
  Receipt Date: 20240423
  Transmission Date: 20240716
  Serious: Yes (Other)
  Sender: FDA-Public Use
  Company Number: US-002147023-NVSC2023US133490

PATIENT
  Sex: Female

DRUGS (1)
  1. KESIMPTA [Suspect]
     Active Substance: OFATUMUMAB
     Indication: Multiple sclerosis
     Dosage: UNK
     Route: 065

REACTIONS (10)
  - Ear infection [Unknown]
  - Ear pain [Unknown]
  - Deafness [Recovered/Resolved with Sequelae]
  - Ear haemorrhage [Unknown]
  - Tinnitus [Unknown]
  - Mastoiditis [Unknown]
  - Dry eye [Unknown]
  - Sinusitis [Unknown]
  - Oropharyngeal pain [Recovered/Resolved]
  - Swelling face [Unknown]
